FAERS Safety Report 24922157 (Version 2)
Quarter: 2025Q1

REPORT INFORMATION
  Report Type: Other
  Country: CA (occurrence: CA)
  Receive Date: 20250204
  Receipt Date: 20250217
  Transmission Date: 20250408
  Serious: Yes (Death, Other)
  Sender: TOLMAR
  Company Number: CA-20250114-6cddb8

PATIENT
  Sex: Male

DRUGS (3)
  1. ELIGARD [Suspect]
     Active Substance: LEUPROLIDE ACETATE
     Indication: Prostate cancer
     Dosage: 30 MILLIGRAM, Q 4 MONTH
     Route: 058
     Dates: start: 20170516
  2. ELIGARD [Suspect]
     Active Substance: LEUPROLIDE ACETATE
     Dosage: 30 MILLIGRAM, Q 4 MONTH
     Route: 058
     Dates: start: 20240924
  3. ELIGARD [Suspect]
     Active Substance: LEUPROLIDE ACETATE
     Indication: Prostate cancer
     Route: 058

REACTIONS (4)
  - Death [Fatal]
  - Sepsis [Unknown]
  - Intentional dose omission [Unknown]
  - Malaise [Unknown]
